FAERS Safety Report 19122298 (Version 2)
Quarter: 2021Q2

REPORT INFORMATION
  Report Type: Spontaneous
  Country: US (occurrence: US)
  Receive Date: 20210412
  Receipt Date: 20210512
  Transmission Date: 20210717
  Serious: No
  Sender: FDA-Public Use
  Company Number: US-ORGANON-O2104USA000499

PATIENT
  Age: 63 Year
  Sex: Female

DRUGS (3)
  1. DULERA [Suspect]
     Active Substance: FORMOTEROL FUMARATE DIHYDRATE\MOMETASONE FUROATE
     Indication: DYSPNOEA
     Dosage: 2 PUFFS TWICE DAILY, BY MOUTH
     Route: 048
     Dates: start: 202103
  2. DULERA [Suspect]
     Active Substance: FORMOTEROL FUMARATE DIHYDRATE\MOMETASONE FUROATE
     Indication: DYSPNOEA
     Dosage: 2 PUFFS TWICE DAILY, BY MOUTH
     Route: 048
     Dates: start: 202102
  3. DULERA [Suspect]
     Active Substance: FORMOTEROL FUMARATE DIHYDRATE\MOMETASONE FUROATE
     Indication: DYSPNOEA
     Dosage: 2 PUFFS, TWICE DAILY, BY MOUTH
     Route: 048
     Dates: start: 202101

REACTIONS (14)
  - Incorrect dose administered [Unknown]
  - Product use in unapproved indication [Unknown]
  - Device malfunction [Unknown]
  - Product use issue [Unknown]
  - Incorrect dose administered [Unknown]
  - Product use issue [Unknown]
  - Device malfunction [Unknown]
  - Incorrect dose administered [Unknown]
  - Dyspnoea [Unknown]
  - Device malfunction [Unknown]
  - Product use issue [Unknown]
  - Poor quality device used [Unknown]
  - Poor quality device used [Unknown]
  - Poor quality device used [Unknown]

NARRATIVE: CASE EVENT DATE: 202101
